FAERS Safety Report 6546246-8 (Version None)
Quarter: 2010Q1

REPORT INFORMATION
  Report Type: 
  Country: None (occurrence: None)
  Receive Date: 20100122
  Receipt Date: 20100115
  Transmission Date: 20100710
  Serious: No
  Sender: FDA-Public Use
  Company Number: US-BAYER-201011864NA

PATIENT
  Sex: Male

DRUGS (1)
  1. CIPRO [Suspect]
     Indication: URINARY TRACT INFECTION
     Dates: start: 20090101

REACTIONS (4)
  - FAILURE TO THRIVE [None]
  - FLUOROSIS [None]
  - GAIT DISTURBANCE [None]
  - WEIGHT DECREASED [None]
